FAERS Safety Report 7532628-4 (Version None)
Quarter: 2011Q2

REPORT INFORMATION
  Report Type: 
  Country: None (occurrence: None)
  Receive Date: 20110608
  Receipt Date: 20110606
  Transmission Date: 20111010
  Serious: Yes (Death)
  Sender: FDA-Public Use
  Company Number: PHHO2011TR09646

PATIENT

DRUGS (1)
  1. EVEROLIMUS [Suspect]
     Dosage: 5 MG, 1X2
     Route: 048
     Dates: start: 20110429, end: 20110503

REACTIONS (2)
  - GASTROINTESTINAL HAEMORRHAGE [None]
  - RENAL FAILURE ACUTE [None]
